FAERS Safety Report 11335530 (Version 1)
Quarter: 2015Q3

REPORT INFORMATION
  Report Type: Spontaneous
  Country: US (occurrence: None)
  Receive Date: 20150731
  Receipt Date: 20150731
  Transmission Date: 20151125
  Serious: Yes (Hospitalization)
  Sender: FDA-Public Use
  Company Number: None

PATIENT
  Age: 18 Year
  Sex: Male
  Weight: 95.26 kg

DRUGS (4)
  1. ABILIFY [Suspect]
     Active Substance: ARIPIPRAZOLE
     Indication: BIPOLAR DISORDER
     Dosage: 1 TABLET  QHS/BEDTIME ORAL
     Route: 048
     Dates: start: 20141112, end: 20141228
  2. DEPAKOTE ER [Suspect]
     Active Substance: DIVALPROEX SODIUM
     Indication: BIPOLAR DISORDER
     Dosage: 4 TABLETS  QHS/BEDTIME ORAL
     Route: 048
     Dates: start: 20141210, end: 20141228
  3. TEMAZEPAM. [Concomitant]
     Active Substance: TEMAZEPAM
  4. ADDERALL [Concomitant]
     Active Substance: AMPHETAMINE ASPARTATE\AMPHETAMINE SULFATE\DEXTROAMPHETAMINE SACCHARATE\DEXTROAMPHETAMINE SULFATE

REACTIONS (3)
  - Pneumonia [None]
  - Pancreatitis [None]
  - Disease complication [None]

NARRATIVE: CASE EVENT DATE: 20141228
